FAERS Safety Report 16598557 (Version 2)
Quarter: 2019Q3

REPORT INFORMATION
  Report Type: Spontaneous
  Country: US (occurrence: US)
  Receive Date: 20190719
  Receipt Date: 20190814
  Transmission Date: 20191004
  Serious: Yes (Other)
  Sender: FDA-Public Use
  Company Number: US-COOPERSURGICAL, INC.-US-2019CPS002178

PATIENT
  Age: 19 Year
  Sex: Female
  Weight: 59.86 kg

DRUGS (1)
  1. PARAGARD T 380A [Suspect]
     Active Substance: COPPER
     Indication: CONTRACEPTION
     Dosage: UNK
     Route: 015
     Dates: start: 2017, end: 20190703

REACTIONS (9)
  - Foreign body in reproductive tract [Not Recovered/Not Resolved]
  - Diarrhoea [Recovered/Resolved]
  - Device breakage [Not Recovered/Not Resolved]
  - Nausea [Recovered/Resolved]
  - Complication of device removal [Not Recovered/Not Resolved]
  - Vomiting [Recovered/Resolved]
  - Abdominal pain [Recovered/Resolved]
  - Device expulsion [Not Recovered/Not Resolved]
  - Embedded device [Not Recovered/Not Resolved]

NARRATIVE: CASE EVENT DATE: 20190628
